FAERS Safety Report 8390207-3 (Version None)
Quarter: 2012Q2

REPORT INFORMATION
  Report Type: 
  Country: None (occurrence: None)
  Receive Date: 20120529
  Receipt Date: 20120524
  Transmission Date: 20120825
  Serious: Yes (Other)
  Sender: FDA-Public Use
  Company Number: US-BAYER-2012-051483

PATIENT
  Age: 46 Year
  Sex: Male

DRUGS (1)
  1. BETASERON [Suspect]
     Dosage: UNK
     Dates: start: 20110301

REACTIONS (4)
  - FALL [None]
  - INTERVERTEBRAL DISC DEGENERATION [None]
  - OPTIC NEURITIS [None]
  - GAIT DISTURBANCE [None]
